FAERS Safety Report 10842125 (Version 1)
Quarter: 2015Q1

REPORT INFORMATION
  Report Type: Report from Study
  Country: US (occurrence: US)
  Receive Date: 20150220
  Receipt Date: 20150220
  Transmission Date: 20150721
  Serious: No
  Sender: FDA-Public Use
  Company Number: US-ABBVIE-14P-163-1269958-00

PATIENT
  Age: 20 Year
  Sex: Male

DRUGS (1)
  1. HUMIRA [Suspect]
     Active Substance: ADALIMUMAB
     Indication: PSORIATIC ARTHROPATHY
     Dates: start: 20140522

REACTIONS (8)
  - Wrong technique in drug usage process [Recovered/Resolved]
  - Anxiety [Unknown]
  - Hypersomnia [Unknown]
  - Fatigue [Unknown]
  - Injection site pain [Recovered/Resolved]
  - Underdose [Recovered/Resolved]
  - Streptococcus test positive [Unknown]
  - Feeling abnormal [Unknown]

NARRATIVE: CASE EVENT DATE: 2014
